FAERS Safety Report 24399405 (Version 1)
Quarter: 2024Q4

REPORT INFORMATION
  Report Type: Report from Study
  Country: BR (occurrence: BR)
  Receive Date: 20241004
  Receipt Date: 20241004
  Transmission Date: 20250114
  Serious: Yes (Other)
  Sender: ABBVIE
  Company Number: BR-ABBVIE-5941398

PATIENT
  Sex: Female

DRUGS (7)
  1. BOTOX [Suspect]
     Active Substance: ONABOTULINUMTOXINA
     Indication: Skin cosmetic procedure
     Dosage: TIME INTERVAL: AS NECESSARY
     Route: 065
     Dates: start: 202206, end: 202206
  2. BOTOX [Suspect]
     Active Substance: ONABOTULINUMTOXINA
     Indication: Skin cosmetic procedure
     Dosage: TIME INTERVAL: AS NECESSARY
     Route: 065
     Dates: start: 202106, end: 202106
  3. BOTOX [Suspect]
     Active Substance: ONABOTULINUMTOXINA
     Indication: Skin cosmetic procedure
     Dosage: TIME INTERVAL: AS NECESSARY
     Route: 065
     Dates: start: 2014, end: 2014
  4. BOTOX [Suspect]
     Active Substance: ONABOTULINUMTOXINA
     Indication: Skin cosmetic procedure
     Dosage: TIME INTERVAL: AS NECESSARY
     Route: 065
     Dates: start: 2015, end: 2015
  5. KETAMINE [Concomitant]
     Active Substance: KETAMINE
     Indication: Migraine
     Dosage: 4 ADMINISTRATIONS WERE DONE WITH INTERVALS OF APPROXIMATELY 1 MONTH BETWEEN ADMINISTRATIONS
     Route: 042
     Dates: start: 20240611
  6. AJOVY [Concomitant]
     Active Substance: FREMANEZUMAB-VFRM
     Indication: Migraine
     Dosage: ON THE 17TH, INJECTION IN THE BELLY
     Dates: start: 20240117
  7. TOPIRAMATE [Suspect]
     Active Substance: TOPIRAMATE
     Indication: Migraine
     Dosage: FORM STRENGTH: 100 MILLIGRAM
     Route: 048
     Dates: start: 201801

REACTIONS (5)
  - Nasal septum deviation [Recovered/Resolved]
  - COVID-19 [Not Recovered/Not Resolved]
  - Impaired reasoning [Not Recovered/Not Resolved]
  - Amnesia [Not Recovered/Not Resolved]
  - Bradyphrenia [Not Recovered/Not Resolved]

NARRATIVE: CASE EVENT DATE: 20160101
